FAERS Safety Report 6012753-X (Version None)
Quarter: 2008Q4

REPORT INFORMATION
  Report Type: 
  Country: None (occurrence: None)
  Receive Date: 20081217
  Receipt Date: 20081209
  Transmission Date: 20090506
  Serious: Yes (Other)
  Sender: FDA-Public Use
  Company Number: CIO08020258

PATIENT
  Age: 82 Year
  Sex: Female

DRUGS (1)
  1. NYQUIL COLD/FLU, PSEUDOEPHEDRINE FREE (PARACETAMOL 325 MG, DEXTROMETHO [Suspect]
     Dosage: 1 LIQCAP, 1 ONLY FOR 1 DAY, ORAL
     Route: 048
     Dates: start: 20081208, end: 20081208

REACTIONS (4)
  - CHOKING [None]
  - DYSPNOEA [None]
  - FOREIGN BODY TRAUMA [None]
  - THROAT IRRITATION [None]
